FAERS Safety Report 7652632-5 (Version None)
Quarter: 2011Q3

REPORT INFORMATION
  Report Type: 
  Country: None (occurrence: None)
  Receive Date: 20110722
  Receipt Date: 20100816
  Transmission Date: 20111222
  Serious: Yes (Hospitalization)
  Sender: FDA-Public Use
  Company Number: UTC-001345

PATIENT
  Age: 27 Year
  Sex: Female
  Weight: 113.6 kg

DRUGS (3)
  1. REMODULIN [Suspect]
     Dosage: (1 IN 1 MIN), SUBCUTANEOUS
     Route: 058
     Dates: start: 20010901
  2. TRACLEER [Concomitant]
  3. REVATIO [Concomitant]

REACTIONS (1)
  - CHEST PAIN [None]
